FAERS Safety Report 19911924 (Version 2)
Quarter: 2021Q4

REPORT INFORMATION
  Report Type: Report from Study
  Country: US (occurrence: US)
  Receive Date: 20211004
  Receipt Date: 20211014
  Transmission Date: 20220303
  Serious: Yes (Hospitalization)
  Sender: FDA-Public Use
  Company Number: US-CELGENE-USA-20210808980

PATIENT
  Age: 65 Year
  Sex: Male
  Weight: 82.2 kg

DRUGS (39)
  1. LISOCABTAGENE MARALEUCEL [Suspect]
     Active Substance: LISOCABTAGENE MARALEUCEL
     Indication: Chronic lymphocytic leukaemia
     Dosage: 100 X 10^6 CAR + T CELLS
     Route: 041
     Dates: start: 20210817, end: 20210817
  2. CYCLOPHOSPHAMIDE [Suspect]
     Active Substance: CYCLOPHOSPHAMIDE
     Indication: Chronic lymphocytic leukaemia
     Dosage: 620 MILLIGRAM
     Route: 041
     Dates: start: 20210812, end: 20210814
  3. FLUDARABINE [Suspect]
     Active Substance: FLUDARABINE PHOSPHATE
     Indication: Chronic lymphocytic leukaemia
     Dosage: 35 MILLIGRAM
     Route: 041
     Dates: start: 20210812, end: 20210814
  4. IBRUTINIB [Suspect]
     Active Substance: IBRUTINIB
     Indication: Chronic lymphocytic leukaemia
     Dosage: 420 MILLIGRAM
     Route: 048
     Dates: end: 20210811
  5. IBRUTINIB [Suspect]
     Active Substance: IBRUTINIB
     Dosage: 420 MILLIGRAM
     Route: 048
     Dates: start: 20210812
  6. SODIUM CHLORIDE [Concomitant]
     Active Substance: SODIUM CHLORIDE
     Indication: Prophylaxis
     Route: 065
     Dates: start: 20210810
  7. SODIUM CHLORIDE [Concomitant]
     Active Substance: SODIUM CHLORIDE
     Indication: Prophylaxis
     Route: 041
     Dates: start: 20210812, end: 20210812
  8. SODIUM CHLORIDE [Concomitant]
     Active Substance: SODIUM CHLORIDE
     Indication: Hypotension
     Route: 041
     Dates: start: 20210813, end: 20210813
  9. SODIUM CHLORIDE [Concomitant]
     Active Substance: SODIUM CHLORIDE
     Indication: Atrial fibrillation
     Route: 041
     Dates: start: 20210814, end: 20210814
  10. SODIUM CHLORIDE [Concomitant]
     Active Substance: SODIUM CHLORIDE
     Route: 041
     Dates: start: 20210817, end: 20210818
  11. SODIUM CHLORIDE [Concomitant]
     Active Substance: SODIUM CHLORIDE
     Route: 040
     Dates: start: 20210827, end: 20210827
  12. SODIUM CHLORIDE [Concomitant]
     Active Substance: SODIUM CHLORIDE
     Route: 040
     Dates: start: 20210830, end: 20210830
  13. ZOFRAN [Concomitant]
     Active Substance: ONDANSETRON HYDROCHLORIDE
     Indication: Prophylaxis of nausea and vomiting
     Route: 041
     Dates: start: 20210812, end: 20210812
  14. ZOFRAN [Concomitant]
     Active Substance: ONDANSETRON HYDROCHLORIDE
     Route: 041
     Dates: start: 20210813, end: 20210813
  15. ZOFRAN [Concomitant]
     Active Substance: ONDANSETRON HYDROCHLORIDE
     Route: 041
     Dates: start: 20210814, end: 20210814
  16. BENADRYL [Concomitant]
     Active Substance: DIPHENHYDRAMINE HYDROCHLORIDE
     Indication: Prophylaxis
     Route: 048
     Dates: start: 20210810
  17. BENADRYL [Concomitant]
     Active Substance: DIPHENHYDRAMINE HYDROCHLORIDE
     Route: 041
     Dates: start: 20210817, end: 20210817
  18. ACYCLOVIR [Concomitant]
     Active Substance: ACYCLOVIR
     Indication: Antibiotic prophylaxis
     Dosage: 800 MILLIGRAM
     Route: 048
     Dates: start: 20210806
  19. ZYLOPRIM [Concomitant]
     Active Substance: ALLOPURINOL
     Indication: Prophylaxis
     Dosage: 300 MILLIGRAM
     Route: 048
     Dates: start: 20210806
  20. DIFLUCAN [Concomitant]
     Active Substance: FLUCONAZOLE
     Indication: Antifungal prophylaxis
     Dosage: 400 MILLIGRAM
     Route: 048
     Dates: start: 20210806, end: 20210827
  21. EFUDEX [Concomitant]
     Active Substance: FLUOROURACIL
     Indication: Squamous cell carcinoma
     Route: 061
     Dates: start: 20210503
  22. KEPPRA [Concomitant]
     Active Substance: LEVETIRACETAM
     Indication: Seizure prophylaxis
     Route: 065
     Dates: start: 20210806
  23. KEPPRA [Concomitant]
     Active Substance: LEVETIRACETAM
     Indication: Anxiety
     Dosage: 1000 MILLIGRAM
     Route: 048
     Dates: start: 20210827, end: 20210831
  24. KEPPRA [Concomitant]
     Active Substance: LEVETIRACETAM
     Dosage: 500 MILLIGRAM
     Route: 048
     Dates: start: 20210831, end: 20210901
  25. KEPPRA [Concomitant]
     Active Substance: LEVETIRACETAM
     Dosage: 1000 MILLIGRAM
     Route: 048
     Dates: start: 20210901, end: 20210901
  26. KEPPRA [Concomitant]
     Active Substance: LEVETIRACETAM
     Dosage: 1500 MILLIGRAM
     Route: 048
     Dates: start: 20210901, end: 20210906
  27. KEPPRA [Concomitant]
     Active Substance: LEVETIRACETAM
     Dosage: 1000 MILLIGRAM
     Route: 048
     Dates: start: 20210906, end: 20210906
  28. COZAAR [Concomitant]
     Active Substance: LOSARTAN POTASSIUM
     Indication: Hypertension
     Dosage: 50 MILLIGRAM
     Route: 048
     Dates: start: 20210423
  29. COMPAZINE [Concomitant]
     Active Substance: PROCHLORPERAZINE MALEATE
     Indication: Prophylaxis of nausea and vomiting
     Dosage: 40 MILLIGRAM
     Route: 048
     Dates: start: 20210806
  30. COMPAZINE [Concomitant]
     Active Substance: PROCHLORPERAZINE MALEATE
     Indication: Vomiting
  31. CRESTOR [Concomitant]
     Active Substance: ROSUVASTATIN CALCIUM
     Indication: Hyperlipidaemia
     Route: 048
     Dates: start: 20210423
  32. ZOLOFT [Concomitant]
     Active Substance: SERTRALINE HYDROCHLORIDE
     Indication: Depression
     Dosage: 50 MILLIGRAM
     Route: 048
     Dates: start: 20210423
  33. SUBLIMAZE [Concomitant]
     Active Substance: FENTANYL CITRATE
     Indication: Sedation
     Route: 041
     Dates: start: 20210810
  34. GAMMAGARD [Concomitant]
     Active Substance: HUMAN IMMUNOGLOBULIN G
     Indication: Hypogammaglobulinaemia
     Route: 041
     Dates: start: 20210810
  35. XYLOCAINE [Concomitant]
     Active Substance: LIDOCAINE HYDROCHLORIDE
     Indication: Sedation
     Route: 030
     Dates: start: 20210810
  36. SULFAMETHOXAZOLE\TRIMETHOPRIM [Concomitant]
     Active Substance: SULFAMETHOXAZOLE\TRIMETHOPRIM
     Indication: Antibiotic prophylaxis
     Dosage: 1 TABLET
     Route: 048
     Dates: start: 20210804
  37. TYLENOL [Concomitant]
     Active Substance: ACETAMINOPHEN
     Indication: Pyrexia
     Route: 048
     Dates: start: 20210810
  38. TYLENOL [Concomitant]
     Active Substance: ACETAMINOPHEN
     Indication: Prophylaxis
     Route: 048
     Dates: start: 20210817, end: 20210817
  39. TYLENOL [Concomitant]
     Active Substance: ACETAMINOPHEN
     Indication: Hypogammaglobulinaemia
     Dosage: 4000 MILLIGRAM
     Route: 048
     Dates: start: 20210826, end: 20210830

REACTIONS (4)
  - Duodenitis [Recovered/Resolved]
  - Atrial fibrillation [Recovered/Resolved]
  - Cytokine release syndrome [Recovered/Resolved]
  - Confusional state [Recovered/Resolved]

NARRATIVE: CASE EVENT DATE: 20210822
